FAERS Safety Report 10192585 (Version 2)
Quarter: 2014Q2

REPORT INFORMATION
  Report Type: Spontaneous
  Country: GB (occurrence: GB)
  Receive Date: 20140523
  Receipt Date: 20140626
  Transmission Date: 20141212
  Serious: Yes (Other)
  Sender: FDA-Public Use
  Company Number: GB-PFIZER INC-2014137336

PATIENT
  Age: 69 Year
  Sex: Male

DRUGS (3)
  1. ATORVASTATIN [Suspect]
     Dosage: 20 MG, 1 A DAY
     Dates: start: 2013
  2. GOPTEN [Suspect]
     Indication: BLOOD PRESSURE DIASTOLIC INCREASED
     Dosage: 2 MG, 1X/DAY
     Route: 048
  3. AMLODIPINE [Concomitant]
     Dosage: UNK

REACTIONS (3)
  - Adverse drug reaction [Recovered/Resolved]
  - Anxiety [Recovered/Resolved]
  - Myalgia [Recovered/Resolved]
